FAERS Safety Report 15179130 (Version 1)
Quarter: 2018Q3

REPORT INFORMATION
  Report Type: Spontaneous
  Country: US (occurrence: US)
  Receive Date: 20180723
  Receipt Date: 20180723
  Transmission Date: 20181010
  Serious: Yes (Other)
  Sender: FDA-Public Use
  Company Number: US-TEVA-2018-US-928903

PATIENT
  Sex: Female

DRUGS (2)
  1. METOPROLOL. [Suspect]
     Active Substance: METOPROLOL
     Dosage: 2 TABLETS
  2. METOPROLOL. [Suspect]
     Active Substance: METOPROLOL
     Dosage: 1.5 TABLETS
     Dates: start: 201806

REACTIONS (9)
  - Abnormal dreams [Unknown]
  - Lethargy [Unknown]
  - Cardiac disorder [Unknown]
  - Psychomotor hyperactivity [Unknown]
  - Anxiety [Unknown]
  - Wrong technique in product usage process [Unknown]
  - Stress [Unknown]
  - Dyspnoea exertional [Unknown]
  - Middle insomnia [Unknown]
